FAERS Safety Report 13305218 (Version 1)
Quarter: 2017Q1

REPORT INFORMATION
  Report Type: Spontaneous
  Country: US (occurrence: US)
  Receive Date: 20170308
  Receipt Date: 20170308
  Transmission Date: 20170428
  Serious: Yes (Death, Other)
  Sender: FDA-Public Use
  Company Number: US-TEVA-733536USA

PATIENT
  Age: 35 Year

DRUGS (31)
  1. PANTOPRAZOLE [Concomitant]
     Active Substance: PANTOPRAZOLE SODIUM
     Route: 042
  2. IFOSFAMIDE. [Suspect]
     Active Substance: IFOSFAMIDE
     Dosage: 3 GM/60 ML
     Dates: end: 201612
  3. DEXAMETHASONE. [Concomitant]
     Active Substance: DEXAMETHASONE
     Route: 042
  4. POTASSIUM CHLORIDE. [Concomitant]
     Active Substance: POTASSIUM CHLORIDE
     Dosage: X 9 (DAILY TOTAL)
  5. PROVENTIL [Concomitant]
     Active Substance: ALBUTEROL
     Indication: DYSPNOEA
     Dosage: AS NEEDED X 2
  6. IPRATROPIUM [Concomitant]
     Active Substance: IPRATROPIUM
     Dosage: X 2
  7. ETOMIDATE. [Concomitant]
     Active Substance: ETOMIDATE
     Route: 042
  8. MIDAZOLAM [Concomitant]
     Active Substance: MIDAZOLAM HYDROCHLORIDE
     Dosage: X 2
     Route: 042
  9. SUCCINYLCHOLINE [Concomitant]
     Active Substance: SUCCINYLCHOLINE
     Route: 042
  10. CHLORHEXIDINE GLUCONATE. [Concomitant]
     Active Substance: CHLORHEXIDINE GLUCONATE
     Dosage: TOWELETTE
     Route: 061
  11. LORAZEPAM. [Concomitant]
     Active Substance: LORAZEPAM
     Route: 042
  12. METHYLENE BLUE. [Concomitant]
     Active Substance: METHYLENE BLUE
     Dosage: 300 MILLIGRAM DAILY;
     Route: 042
  13. OMEPRAZOLE SR [Concomitant]
     Route: 048
  14. ETOPOSIDE. [Concomitant]
     Active Substance: ETOPOSIDE
     Route: 042
  15. FUROSEMIDE. [Concomitant]
     Active Substance: FUROSEMIDE
     Dosage: X 2
     Route: 042
  16. PROPOFOL. [Concomitant]
     Active Substance: PROPOFOL
     Dosage: CONTINUOUS INFUSION
     Route: 042
  17. PROVENTIL [Concomitant]
     Active Substance: ALBUTEROL
     Indication: WHEEZING
  18. MUPIROCIN. [Concomitant]
     Active Substance: MUPIROCIN
     Dosage: 4 PERCENT DAILY;
  19. MESNA. [Concomitant]
     Active Substance: MESNA
     Dosage: 3136.86 MILLIGRAM DAILY;
     Route: 042
  20. ONDANSETRON [Concomitant]
     Active Substance: ONDANSETRON
     Route: 042
  21. POTASSIUM PHOSPHATE [Concomitant]
     Active Substance: POTASSIUM PHOSPHATE
  22. SMX/TMP (SULFAMETHOXAZOLE W/TRIMETHOPRIM) [Concomitant]
     Dosage: EVERY 8 HOURS X 3
     Route: 042
  23. MEROPENEM. [Concomitant]
     Active Substance: MEROPENEM
     Dosage: EVERY 8 HOURS X 3
     Route: 042
  24. METHYLPREDNISOLONE. [Concomitant]
     Active Substance: METHYLPREDNISOLONE
     Dosage: EVERY 6 HOURS X 4
     Route: 042
  25. MORPHINE SR [Concomitant]
     Active Substance: MORPHINE
     Dosage: THREE TIMES A DAY X 3
     Route: 048
  26. SUCRALFATE. [Concomitant]
     Active Substance: SUCRALFATE
     Dosage: FOUR TIMES A DAY X 4
     Route: 048
  27. VENLAFAXINE SR [Concomitant]
     Route: 048
  28. APAP [Concomitant]
     Active Substance: ACETAMINOPHEN
     Route: 048
  29. CALCIUM GLUCONATE. [Concomitant]
     Active Substance: CALCIUM GLUCONATE
     Route: 042
  30. DIPHENHYDRAMINE. [Concomitant]
     Active Substance: DIPHENHYDRAMINE
     Route: 042
  31. ALLOPURINOL. [Concomitant]
     Active Substance: ALLOPURINOL
     Route: 048

REACTIONS (5)
  - Neurotoxicity [Recovered/Resolved]
  - Death [Fatal]
  - Confusional state [Recovered/Resolved]
  - Mental status changes [Recovered/Resolved]
  - Disorientation [Recovered/Resolved]

NARRATIVE: CASE EVENT DATE: 2016
